FAERS Safety Report 9917709 (Version 1)
Quarter: 2014Q1

REPORT INFORMATION
  Report Type: Spontaneous
  Country: US (occurrence: US)
  Receive Date: 20140221
  Receipt Date: 20140221
  Transmission Date: 20141002
  Serious: Yes (Death, Other)
  Sender: FDA-Public Use
  Company Number: US-BAXTER-2014BAX007912

PATIENT
  Sex: Male

DRUGS (4)
  1. GAMMAGARD LIQUID [Suspect]
     Indication: CONGENITAL DYSKERATOSIS
     Route: 042
  2. GAMMAGARD LIQUID [Suspect]
     Indication: ANAEMIA
  3. GAMMAGARD LIQUID [Suspect]
     Indication: OFF LABEL USE
  4. MESALAMINE [Concomitant]
     Indication: PRODUCT USED FOR UNKNOWN INDICATION
     Route: 065

REACTIONS (4)
  - Drug ineffective [Unknown]
  - Pneumonia bacterial [Fatal]
  - Pneumonia fungal [Fatal]
  - Sepsis [Fatal]
